FAERS Safety Report 23148916 (Version 5)
Quarter: 2024Q4

REPORT INFORMATION
  Report Type: Spontaneous
  Country: US (occurrence: US)
  Receive Date: 20231106
  Receipt Date: 20241106
  Transmission Date: 20250115
  Serious: No
  Sender: PFIZER
  Company Number: US-PFIZER INC-PV202300170377

PATIENT
  Age: 11 Year
  Sex: Male

DRUGS (2)
  1. GENOTROPIN [Suspect]
     Active Substance: SOMATROPIN
     Dosage: 1.6 MG
     Dates: start: 202208
  2. GENOTROPIN [Suspect]
     Active Substance: SOMATROPIN
     Dosage: 1.4 MG
     Dates: start: 202308

REACTIONS (4)
  - Drug dose omission by device [Unknown]
  - Device use error [Unknown]
  - Device breakage [Unknown]
  - Device leakage [Unknown]
